FAERS Safety Report 5095589-6 (Version None)
Quarter: 2006Q3

REPORT INFORMATION
  Report Type: 
  Country: None (occurrence: None)
  Receive Date: 20060901
  Receipt Date: 20060824
  Transmission Date: 20061208
  Serious: Yes (Other)
  Sender: FDA-Public Use
  Company Number: GB-BOEHRINGER INGELHEIM PHARMACEUTICALS, INC.-2006-BP-10188YA

PATIENT
  Age: 87 Year

DRUGS (1)
  1. TAMSULOSIN HYDROCHLORIDE [Suspect]
     Route: 048

REACTIONS (3)
  - IRIDOCELE [None]
  - IRIS DISORDER [None]
  - MIOSIS [None]
